FAERS Safety Report 14764834 (Version 1)
Quarter: 2018Q2

REPORT INFORMATION
  Report Type: Spontaneous
  Country: US (occurrence: US)
  Receive Date: 20180416
  Receipt Date: 20180416
  Transmission Date: 20180711
  Serious: Yes (Hospitalization, Other)
  Sender: FDA-Public Use
  Company Number: US-ALLERGAN-1820583US

PATIENT
  Age: 55 Year
  Sex: Female

DRUGS (1)
  1. VIBERZI [Suspect]
     Active Substance: ELUXADOLINE
     Indication: IRRITABLE BOWEL SYNDROME
     Dosage: 75 MG, SINGLE
     Route: 065
     Dates: start: 20160413, end: 20160413

REACTIONS (15)
  - Pancreatic pseudocyst [Unknown]
  - Hypokalaemia [Unknown]
  - Acute kidney injury [Unknown]
  - Mood altered [Not Recovered/Not Resolved]
  - Pancreatitis relapsing [Unknown]
  - Anxiety [Not Recovered/Not Resolved]
  - Pain [Not Recovered/Not Resolved]
  - Fear of disease [Not Recovered/Not Resolved]
  - Product use complaint [Unknown]
  - Respiratory failure [Unknown]
  - Hypomagnesaemia [Unknown]
  - Transaminases increased [Unknown]
  - Contraindicated product administered [Unknown]
  - Iron deficiency anaemia [Unknown]
  - Pancreatitis acute [Unknown]

NARRATIVE: CASE EVENT DATE: 201604
